FAERS Safety Report 20945346 (Version 1)
Quarter: 2022Q2

REPORT INFORMATION
  Report Type: Spontaneous
  Country: PL (occurrence: PL)
  Receive Date: 20220610
  Receipt Date: 20220610
  Transmission Date: 20220721
  Serious: Yes (Death, Hospitalization, Other)
  Sender: FDA-Public Use
  Company Number: PL-009507513-2205POL008348

PATIENT
  Age: 66 Year
  Sex: Male

DRUGS (5)
  1. PEMETREXED [Suspect]
     Active Substance: PEMETREXED
     Indication: Large cell lung cancer
     Dosage: 500 MG/M2, UNKNOWN
     Route: 065
     Dates: start: 202103, end: 202104
  2. CISPLATIN [Suspect]
     Active Substance: CISPLATIN
     Indication: Large cell lung cancer
     Dosage: 75 MG/M2, UNKNOWN
     Route: 065
     Dates: start: 202103, end: 202104
  3. PEMBROLIZUMAB [Suspect]
     Active Substance: PEMBROLIZUMAB
     Indication: Large cell lung cancer
     Dosage: 200 MG, EVERY 3 WEEKS
     Route: 065
     Dates: start: 202103, end: 202104
  4. VITAMIN B12 [Concomitant]
     Active Substance: CYANOCOBALAMIN
     Indication: Premedication
     Dosage: UNK
  5. FOLIC ACID [Concomitant]
     Active Substance: FOLIC ACID
     Indication: Premedication
     Dosage: UNK

REACTIONS (2)
  - Pancreatitis [Fatal]
  - Therapy partial responder [Fatal]

NARRATIVE: CASE EVENT DATE: 20210401
